FAERS Safety Report 6223000-8 (Version None)
Quarter: 2009Q2

REPORT INFORMATION
  Report Type: 
  Country: None (occurrence: None)
  Receive Date: 20090611
  Receipt Date: 20090528
  Transmission Date: 20091009
  Serious: Yes (Other)
  Sender: FDA-Public Use
  Company Number: US-ELI_LILLY_AND_COMPANY-US200906000358

PATIENT
  Age: 65 Year
  Sex: Male

DRUGS (4)
  1. STRATTERA [Suspect]
     Dosage: 40 MG, UNKNOWN
     Route: 065
     Dates: start: 20060101, end: 20090401
  2. LIPITOR [Concomitant]
     Dosage: UNK, UNKNOWN
     Route: 065
     Dates: end: 20090401
  3. ZETIA [Concomitant]
     Dosage: UNK, UNKNOWN
     Route: 065
     Dates: end: 20090401
  4. ZOLOFT [Concomitant]
     Dosage: UNK, UNKNOWN
     Route: 065
     Dates: end: 20090401

REACTIONS (7)
  - ASPARTATE AMINOTRANSFERASE INCREASED [None]
  - ASTHENIA [None]
  - BLOOD CREATINE PHOSPHOKINASE INCREASED [None]
  - CHEST PAIN [None]
  - DYSPNOEA [None]
  - LIVER FUNCTION TEST ABNORMAL [None]
  - NEUTROPENIA [None]
